FAERS Safety Report 17493867 (Version 1)
Quarter: 2020Q1

REPORT INFORMATION
  Report Type: Spontaneous
  Country: US (occurrence: US)
  Receive Date: 20200304
  Receipt Date: 20200304
  Transmission Date: 20200409
  Serious: No
  Sender: FDA-Public Use
  Company Number: NVSC2020US060951

PATIENT
  Age: 24 Year
  Sex: Female

DRUGS (2)
  1. PREDNISONE. [Suspect]
     Active Substance: PREDNISONE
     Indication: T-CELL LYMPHOMA
     Dosage: 1 MG/KG
     Route: 065
  2. BEXAROTENE. [Suspect]
     Active Substance: BEXAROTENE
     Indication: T-CELL LYMPHOMA
     Dosage: 150 MG, QID
     Route: 065

REACTIONS (1)
  - Drug ineffective [Unknown]
